FAERS Safety Report 5566618-8 (Version None)
Quarter: 2007Q4

REPORT INFORMATION
  Report Type: 
  Country: None (occurrence: None)
  Receive Date: 20071219
  Receipt Date: 20071207
  Transmission Date: 20080405
  Serious: Yes (Life-Threatening)
  Sender: FDA-Public Use
  Company Number: CH-ROCHE-535925

PATIENT
  Age: 59 Year
  Sex: Female

DRUGS (7)
  1. INVIRASE [Suspect]
     Indication: DRUG USE FOR UNKNOWN INDICATION
     Route: 048
  2. CIPROFLOX [Interacting]
     Indication: DRUG USE FOR UNKNOWN INDICATION
     Dosage: FORM: FILM COATED TABLETS
     Route: 048
     Dates: start: 20071019, end: 20071020
  3. KALETRA [Interacting]
     Indication: DRUG USE FOR UNKNOWN INDICATION
     Route: 048
  4. DILZEM [Interacting]
     Indication: DRUG USE FOR UNKNOWN INDICATION
     Route: 048
     Dates: start: 20070901
  5. ZIAGEN [Concomitant]
     Route: 048
  6. FLAGYL [Concomitant]
     Route: 048
  7. NEXIUM [Concomitant]
     Route: 048

REACTIONS (2)
  - DRUG INTERACTION [None]
  - ELECTROCARDIOGRAM QT PROLONGED [None]
